FAERS Safety Report 14076476 (Version 5)
Quarter: 2019Q3

REPORT INFORMATION
  Report Type: Spontaneous
  Country: US (occurrence: US)
  Receive Date: 20171011
  Receipt Date: 20190926
  Transmission Date: 20191004
  Serious: Yes (Hospitalization)
  Sender: FDA-Public Use
  Company Number: US-ACTELION-A-US2017-160401

PATIENT
  Age: 61 Year
  Sex: Female

DRUGS (11)
  1. POTASSIUM CHLORIDE. [Concomitant]
     Active Substance: POTASSIUM CHLORIDE
     Dosage: 20 MEQ, TID
     Route: 048
  2. PRAMIPEXOLE. [Concomitant]
     Active Substance: PRAMIPEXOLE
     Dosage: 0.25 MG, TID
     Dates: start: 20170912
  3. OPSUMIT [Suspect]
     Active Substance: MACITENTAN
     Indication: PULMONARY ARTERIAL HYPERTENSION
     Dosage: 10 MG, QD
     Route: 048
     Dates: start: 20170719
  4. SPIRIVA [Concomitant]
     Active Substance: TIOTROPIUM BROMIDE MONOHYDRATE
  5. SPIRONOLACTONE. [Concomitant]
     Active Substance: SPIRONOLACTONE
     Dosage: 25 MG 1-2 XQD
     Dates: start: 201709
  6. CAPTOPRIL. [Suspect]
     Active Substance: CAPTOPRIL
     Indication: PRODUCT USED FOR UNKNOWN INDICATION
     Dosage: 6.25 MG, TID
     Route: 048
     Dates: start: 20170807
  7. SYMBICORT [Concomitant]
     Active Substance: BUDESONIDE\FORMOTEROL FUMARATE DIHYDRATE
  8. METOLAZONE. [Concomitant]
     Active Substance: METOLAZONE
     Dosage: 2.5 MG, EVERY 3 DAYS
     Dates: start: 20170609
  9. DULOXETINE. [Concomitant]
     Active Substance: DULOXETINE
     Dosage: 30 MG, QD
     Dates: start: 2017
  10. LASIX [Concomitant]
     Active Substance: FUROSEMIDE
     Dosage: 80 MG, BID
     Route: 042
     Dates: start: 2012
  11. ATORVASTATIN [Concomitant]
     Active Substance: ATORVASTATIN
     Dosage: 10 MG, QD
     Dates: start: 20170912

REACTIONS (17)
  - Hypoacusis [Recovered/Resolved]
  - Product dose omission [Unknown]
  - Feeling abnormal [Recovered/Resolved]
  - Blood potassium increased [Unknown]
  - Nasopharyngitis [Unknown]
  - Dyspnoea [Unknown]
  - Judgement impaired [Recovered/Resolved]
  - Visual impairment [Recovered/Resolved]
  - Dizziness [Recovering/Resolving]
  - Hypercapnia [Recovered/Resolved]
  - Cough [Unknown]
  - Syncope [Recovered/Resolved]
  - Blood potassium decreased [Recovering/Resolving]
  - Fall [Recovered/Resolved]
  - Vision blurred [Recovered/Resolved]
  - Acute respiratory failure [Recovered/Resolved]
  - Hypoxia [Recovered/Resolved]

NARRATIVE: CASE EVENT DATE: 20170807
